FAERS Safety Report 13116727 (Version 1)
Quarter: 2017Q1

REPORT INFORMATION
  Report Type: Other
  Country: IT (occurrence: IT)
  Receive Date: 20170116
  Receipt Date: 20170116
  Transmission Date: 20170428
  Serious: Yes (Hospitalization, Other)
  Sender: FDA-Public Use
  Company Number: IT-HETERO LABS LTD-1062036

PATIENT
  Age: 60 Year
  Sex: Male

DRUGS (3)
  1. EMTRICITABINE\TENOFOVIR. [Suspect]
     Active Substance: EMTRICITABINE\TENOFOVIR
     Indication: HIV INFECTION
     Route: 065
  2. DOXORUBICIN HYDROCHLORIDE. [Suspect]
     Active Substance: DOXORUBICIN HYDROCHLORIDE
     Route: 042
  3. DARUNAVIR, RITONAVIR [Suspect]
     Active Substance: DARUNAVIR\RITONAVIR
     Route: 065

REACTIONS (1)
  - Kaposi^s sarcoma [Recovered/Resolved]
